FAERS Safety Report 5103517-X (Version None)
Quarter: 2006Q3

REPORT INFORMATION
  Report Type: 
  Country: None (occurrence: None)
  Receive Date: 20060913
  Receipt Date: 20060726
  Transmission Date: 20061208
  Serious: Yes (Hospitalization, Other)
  Sender: FDA-Public Use
  Company Number: 2006AP03531

PATIENT
  Age: 25004 Day
  Sex: Male
  Weight: 68 kg

DRUGS (8)
  1. CRESTOR [Suspect]
     Indication: HYPERCHOLESTEROLAEMIA
     Route: 048
     Dates: start: 20060121, end: 20060317
  2. CRESTOR [Suspect]
     Route: 048
     Dates: start: 20060318, end: 20060519
  3. CRESTOR [Suspect]
     Route: 048
     Dates: start: 20060520, end: 20060706
  4. CRESTOR [Suspect]
     Route: 048
     Dates: start: 20060707
  5. BLOPRESS [Concomitant]
     Route: 048
  6. AMLODIN [Concomitant]
     Route: 048
  7. 8-HOUR BAYER [Concomitant]
     Indication: THROMBOSIS PROPHYLAXIS
     Route: 048
  8. PANALDINE [Concomitant]
     Indication: THROMBOSIS PROPHYLAXIS
     Route: 048

REACTIONS (10)
  - ANGINA PECTORIS [None]
  - AORTIC ANEURYSM [None]
  - BENIGN PROSTATIC HYPERPLASIA [None]
  - CAROTID ARTERY STENOSIS [None]
  - CHEST PAIN [None]
  - CHOLELITHIASIS [None]
  - HYPOAESTHESIA [None]
  - INFLAMMATION [None]
  - PROSTATE CANCER [None]
  - RESPIRATORY DISORDER [None]
